FAERS Safety Report 7221139-1 (Version None)
Quarter: 2011Q1

REPORT INFORMATION
  Report Type: 
  Country: None (occurrence: None)
  Receive Date: 20110112
  Receipt Date: 20110104
  Transmission Date: 20110831
  Serious: Yes (Other)
  Sender: FDA-Public Use
  Company Number: US-PFIZER INC-2011002702

PATIENT
  Sex: Female
  Weight: 97.506 kg

DRUGS (7)
  1. EFFEXOR [Suspect]
     Dosage: UNK
     Dates: start: 20031201, end: 20040101
  2. ZOLOFT [Suspect]
     Dosage: UNK
  3. KLONOPIN [Concomitant]
     Indication: ANXIETY
     Dosage: 1 MG 4 TIMES A DAY AS NEEDED
     Route: 048
  4. DIOVAN HCT [Concomitant]
     Indication: CARDIOVASCULAR EVENT PROPHYLAXIS
     Dosage: 160/12.5
     Route: 048
  5. ZOLOFT [Suspect]
     Indication: MAJOR DEPRESSION
     Dosage: UNK
     Route: 048
     Dates: start: 20040101, end: 20110103
  6. EFFEXOR [Suspect]
     Indication: MAJOR DEPRESSION
     Dosage: 75 MG, 1X/DAY
     Route: 048
     Dates: start: 20031201, end: 20040101
  7. RITALIN [Concomitant]
     Indication: MAJOR DEPRESSION
     Dosage: UNK
     Route: 048

REACTIONS (9)
  - INTERVERTEBRAL DISC OPERATION [None]
  - PAIN [None]
  - DRUG INEFFECTIVE [None]
  - AGITATION [None]
  - RESTLESSNESS [None]
  - PANIC ATTACK [None]
  - INSOMNIA [None]
  - EMOTIONAL DISTRESS [None]
  - TEARFULNESS [None]
